FAERS Safety Report 4360030-5 (Version None)
Quarter: 2004Q2

REPORT INFORMATION
  Report Type: 
  Country: None (occurrence: None)
  Receive Date: 20040513
  Receipt Date: 20040426
  Transmission Date: 20050107
  Serious: Yes (Hospitalization)
  Sender: FDA-Public Use
  Company Number: US013094

PATIENT
  Age: 53 Year
  Sex: Female

DRUGS (5)
  1. PROVIGIL [Suspect]
     Dosage: 50 MG QD ORAL
     Route: 048
  2. PROVIGIL [Suspect]
     Dosage: 50 MG BID ORAL
     Route: 048
  3. LITHIUM CARBONATE [Concomitant]
  4. LAMICTAL [Concomitant]
  5. RISPERDAL [Concomitant]

REACTIONS (7)
  - ANXIETY [None]
  - BIPOLAR I DISORDER [None]
  - DISSOCIATION [None]
  - ENERGY INCREASED [None]
  - HYPOMANIA [None]
  - IMPAIRED DRIVING ABILITY [None]
  - OBSESSIVE THOUGHTS [None]
